FAERS Safety Report 8052951 (Version 3)
Quarter: 2019Q1

REPORT INFORMATION
  Report Type: Report from Study
  Country: GB (occurrence: GB)
  Receive Date: 20110725
  Receipt Date: 20190219
  Transmission Date: 20190418
  Serious: Yes (Death, Hospitalization)
  Sender: FDA-Public Use
  Company Number: GB-CELGENEUS-167-50794-11072272

PATIENT
  Age: 64 Year
  Sex: Female

DRUGS (1)
  1. VIDAZA [Suspect]
     Active Substance: AZACITIDINE
     Indication: MYELODYSPLASTIC SYNDROME
     Route: 065

REACTIONS (2)
  - Abdominal distension [Not Recovered/Not Resolved]
  - Neutropenic sepsis [Fatal]

NARRATIVE: CASE EVENT DATE: 20101130
